FAERS Safety Report 26055121 (Version 1)
Quarter: 2025Q4

REPORT INFORMATION
  Report Type: Report from Study
  Country: US (occurrence: US)
  Receive Date: 20251117
  Receipt Date: 20251117
  Transmission Date: 20260117
  Serious: No
  Sender: MALLINCKRODT
  Company Number: US-MALLINCKRODT-MNK202506975

PATIENT
  Sex: Male

DRUGS (1)
  1. CORTICOTROPIN [Suspect]
     Active Substance: CORTICOTROPIN
     Indication: Product used for unknown indication
     Dosage: UNKNOWN

REACTIONS (6)
  - Feeling hot [Unknown]
  - Injection site bruising [Unknown]
  - Injection site discolouration [Unknown]
  - Hyperhidrosis [Unknown]
  - Insomnia [Unknown]
  - Rhinitis [Unknown]
